FAERS Safety Report 8169179-2 (Version None)
Quarter: 2012Q1

REPORT INFORMATION
  Report Type: 
  Country: None (occurrence: None)
  Receive Date: 20120227
  Receipt Date: 20120222
  Transmission Date: 20120608
  Serious: Yes (Death, Hospitalization, Other)
  Sender: FDA-Public Use
  Company Number: US-ASTRAZENECA-2010SE35882

PATIENT
  Age: 50 Year
  Sex: Male
  Weight: 59.3 kg

DRUGS (11)
  1. NITROSTAT [Concomitant]
     Indication: CHEST PAIN
     Dosage: EVERY FIVE MINUTES AS NEEDED
     Route: 060
  2. ALLEGRA [Concomitant]
     Route: 048
  3. ZANTAC [Concomitant]
     Indication: DYSPEPSIA
     Route: 048
  4. CRESTOR [Suspect]
     Route: 048
  5. HYDRODIURIL [Concomitant]
     Route: 048
  6. TRAMADOL HCL [Concomitant]
     Indication: PAIN
     Route: 048
  7. TRAMADOL HCL [Concomitant]
     Route: 048
  8. FLUOXETINE HCL [Concomitant]
     Route: 048
  9. LIPITOR [Concomitant]
     Route: 048
  10. RHINOCORT [Suspect]
     Dosage: 32 MCG/ACT 2 SPRAY DAILY
     Route: 045
     Dates: start: 20100101
  11. CELECOXIB [Concomitant]
     Route: 048

REACTIONS (13)
  - ELECTROCARDIOGRAM T WAVE ABNORMAL [None]
  - CHEST PAIN [None]
  - LEFT ATRIAL DILATATION [None]
  - ANGINA PECTORIS [None]
  - DYSPNOEA [None]
  - VENTRICULAR EXTRASYSTOLES [None]
  - NAUSEA [None]
  - COMPLETED SUICIDE [None]
  - ECG SIGNS OF MYOCARDIAL ISCHAEMIA [None]
  - MYOCARDIAL INFARCTION [None]
  - CARDIAC STRESS TEST ABNORMAL [None]
  - ACUTE MYOCARDIAL INFARCTION [None]
  - SINUS BRADYCARDIA [None]
